FAERS Safety Report 7287861-6 (Version None)
Quarter: 2011Q1

REPORT INFORMATION
  Report Type: 
  Country: None (occurrence: None)
  Receive Date: 20110211
  Receipt Date: 20110211
  Transmission Date: 20110831
  Serious: No
  Sender: FDA-Public Use
  Company Number: US-PFIZER INC-US-WYE-H17383910

PATIENT
  Age: 20 Year

DRUGS (2)
  1. SIMVASTATIN [Concomitant]
  2. PRISTIQ [Suspect]
     Dosage: UNK
     Route: 065
     Dates: start: 20100801

REACTIONS (1)
  - BLOOD CHOLESTEROL INCREASED [None]
